FAERS Safety Report 17599992 (Version 3)
Quarter: 2020Q3

REPORT INFORMATION
  Report Type: Spontaneous
  Country: US (occurrence: US)
  Receive Date: 20200330
  Receipt Date: 20200810
  Transmission Date: 20201102
  Serious: Yes (Hospitalization)
  Sender: FDA-Public Use
  Company Number: US-SHIRE-US202003571

PATIENT
  Sex: Female
  Weight: 56.01 kg

DRUGS (16)
  1. GATTEX [Suspect]
     Active Substance: TEDUGLUTIDE\WATER
     Indication: SHORT-BOWEL SYNDROME
     Dosage: 0.28, UNK,
     Route: 058
     Dates: start: 20170828
  2. GATTEX [Suspect]
     Active Substance: TEDUGLUTIDE\WATER
     Dosage: 1X/DAY:QD
     Route: 058
     Dates: start: 20170828, end: 20200215
  3. GATTEX [Suspect]
     Active Substance: TEDUGLUTIDE\WATER
     Indication: SHORT-BOWEL SYNDROME
     Dosage: 0.28, UNK,
     Route: 058
     Dates: start: 20170828
  4. GATTEX [Suspect]
     Active Substance: TEDUGLUTIDE\WATER
     Dosage: 2.8 MILLIGRAM, 1X/DAY:QD
     Route: 050
  5. GATTEX [Suspect]
     Active Substance: TEDUGLUTIDE\WATER
     Dosage: 2.8 MILLIGRAM, 1X/DAY:QD
     Route: 050
  6. GATTEX [Suspect]
     Active Substance: TEDUGLUTIDE\WATER
     Dosage: 2.8 MILLIGRAM, 1X/DAY:QD
     Route: 050
  7. GATTEX [Suspect]
     Active Substance: TEDUGLUTIDE\WATER
     Dosage: 1X/DAY:QD
     Route: 058
     Dates: start: 20170828, end: 20200215
  8. GATTEX [Suspect]
     Active Substance: TEDUGLUTIDE\WATER
     Indication: SHORT-BOWEL SYNDROME
     Dosage: 0.28, UNK,
     Route: 058
     Dates: start: 20170828
  9. GATTEX [Suspect]
     Active Substance: TEDUGLUTIDE\WATER
     Dosage: 1X/DAY:QD
     Route: 058
     Dates: start: 20170828, end: 20200215
  10. GATTEX [Suspect]
     Active Substance: TEDUGLUTIDE\WATER
     Dosage: 2.8 MILLIGRAM, 1X/DAY:QD
     Route: 050
  11. GATTEX [Suspect]
     Active Substance: TEDUGLUTIDE\WATER
     Dosage: 2.8 MILLIGRAM, 1X/DAY:QD
     Route: 050
  12. GATTEX [Suspect]
     Active Substance: TEDUGLUTIDE\WATER
     Dosage: 2.8 MILLIGRAM, 1X/DAY:QD
     Route: 050
  13. GATTEX [Suspect]
     Active Substance: TEDUGLUTIDE\WATER
     Dosage: 1X/DAY:QD
     Route: 058
     Dates: start: 20170828, end: 20200215
  14. GATTEX [Suspect]
     Active Substance: TEDUGLUTIDE\WATER
     Indication: SHORT-BOWEL SYNDROME
     Dosage: 0.28, UNK,
     Route: 058
     Dates: start: 20170828
  15. GATTEX [Suspect]
     Active Substance: TEDUGLUTIDE\WATER
     Dosage: 2.8 MILLIGRAM, 1X/DAY:QD
     Route: 050
  16. GATTEX [Suspect]
     Active Substance: TEDUGLUTIDE\WATER
     Dosage: 2.8 MILLIGRAM, 1X/DAY:QD
     Route: 050

REACTIONS (2)
  - Obstruction [Unknown]
  - Hospitalisation [Unknown]
